FAERS Safety Report 5224055-X (Version None)
Quarter: 2007Q1

REPORT INFORMATION
  Report Type: 
  Country: None (occurrence: None)
  Receive Date: 20070130
  Receipt Date: 20070117
  Transmission Date: 20070707
  Serious: Yes (Hospitalization)
  Sender: FDA-Public Use
  Company Number: JP-MERCK-0612USA03439

PATIENT
  Age: 71 Year
  Sex: Male

DRUGS (4)
  1. PEPCID RPD [Suspect]
     Indication: GASTRITIS
     Route: 048
     Dates: start: 20061129, end: 20061201
  2. SUCRALFATE [Concomitant]
     Route: 048
     Dates: start: 20061129, end: 20061201
  3. NU-LOTAN [Concomitant]
     Route: 048
     Dates: start: 20060927
  4. ADALAT [Concomitant]
     Indication: GASTRITIS
     Route: 048
     Dates: start: 20061122

REACTIONS (1)
  - CHROMATURIA [None]
